FAERS Safety Report 12560908 (Version 4)
Quarter: 2017Q1

REPORT INFORMATION
  Report Type: Spontaneous
  Country: JP (occurrence: JP)
  Receive Date: 20160715
  Receipt Date: 20170329
  Transmission Date: 20170428
  Serious: Yes (Other)
  Sender: FDA-Public Use
  Company Number: JP-SUN PHARMACEUTICAL INDUSTRIES LTD-2016R1-120348

PATIENT
  Age: 81 Year
  Sex: Female

DRUGS (1)
  1. VALACYLOVIR [Suspect]
     Active Substance: VALACYCLOVIR HYDROCHLORIDE
     Indication: HERPES ZOSTER
     Dosage: 500 MG, DAILY
     Route: 065

REACTIONS (1)
  - Toxic encephalopathy [Recovering/Resolving]
